FAERS Safety Report 24132461 (Version 1)
Quarter: 2024Q3

REPORT INFORMATION
  Report Type: Spontaneous
  Country: RU (occurrence: RU)
  Receive Date: 20240724
  Receipt Date: 20240724
  Transmission Date: 20241016
  Serious: Yes (Other)
  Sender: MERCK
  Company Number: RU-009507513-2407RUS012158

PATIENT
  Sex: Female

DRUGS (3)
  1. PEMBROLIZUMAB [Suspect]
     Active Substance: PEMBROLIZUMAB
     Indication: Endometrial adenocarcinoma
     Dosage: 200 MILLIGRAM, Q3W
     Route: 042
     Dates: start: 20220829
  2. LENVATINIB MESYLATE [Suspect]
     Active Substance: LENVATINIB MESYLATE
     Indication: Endometrial adenocarcinoma
     Dosage: 20 MILLIGRAM, QD
     Route: 048
     Dates: start: 20220829, end: 2023
  3. LENVATINIB MESYLATE [Suspect]
     Active Substance: LENVATINIB MESYLATE
     Dosage: 14 MILLIGRAM, QD
     Route: 048
     Dates: start: 2023

REACTIONS (12)
  - Transaminases increased [Unknown]
  - Transaminases increased [Unknown]
  - Transaminases increased [Unknown]
  - Blood fibrinogen increased [Unknown]
  - Thyroid disorder [Unknown]
  - Thyroid mass [Unknown]
  - Immune-mediated hypothyroidism [Recovered/Resolved]
  - Diarrhoea [Unknown]
  - Gastrointestinal toxicity [Unknown]
  - Radiation fibrosis - lung [Unknown]
  - Pulmonary calcification [Unknown]
  - Diarrhoea [Unknown]

NARRATIVE: CASE EVENT DATE: 20221115
